FAERS Safety Report 16446707 (Version 1)
Quarter: 2019Q2

REPORT INFORMATION
  Report Type: Report from Study
  Country: US (occurrence: US)
  Receive Date: 20190618
  Receipt Date: 20190618
  Transmission Date: 20190711
  Serious: Yes (Other)
  Sender: FDA-Public Use
  Company Number: US-ACTELION-A-NJ2019-186628

PATIENT
  Sex: Female
  Weight: 66.67 kg

DRUGS (2)
  1. TRACLEER [Suspect]
     Active Substance: BOSENTAN
     Indication: PULMONARY ARTERIAL HYPERTENSION
     Dosage: 125 MG, QD
     Route: 048
  2. COUMADIN [Concomitant]
     Active Substance: WARFARIN SODIUM

REACTIONS (10)
  - Contusion [Unknown]
  - Condition aggravated [Unknown]
  - Fibrosis [Unknown]
  - Gastrointestinal disorder [Unknown]
  - Cough [Unknown]
  - Dyspnoea exertional [Unknown]
  - Oedema [Unknown]
  - Dysstasia [Unknown]
  - Dyspnoea [Unknown]
  - Fall [Unknown]
